FAERS Safety Report 20302960 (Version 1)
Quarter: 2022Q1

REPORT INFORMATION
  Report Type: Spontaneous
  Country: MM (occurrence: MM)
  Receive Date: 20220106
  Receipt Date: 20220106
  Transmission Date: 20220423
  Serious: Yes (Death, Other)
  Sender: FDA-Public Use
  Company Number: MM-JNJFOC-20211259037

PATIENT
  Age: 51 Year
  Sex: Male
  Weight: 36 kg

DRUGS (13)
  1. SIRTURO [Suspect]
     Active Substance: BEDAQUILINE FUMARATE
     Indication: Tuberculosis
     Route: 048
     Dates: start: 20210521, end: 202106
  2. SIRTURO [Suspect]
     Active Substance: BEDAQUILINE FUMARATE
     Route: 048
     Dates: start: 202106, end: 20211020
  3. LEVOFLOXACIN [Suspect]
     Active Substance: LEVOFLOXACIN
     Indication: Tuberculosis
     Route: 065
     Dates: start: 20210521, end: 20211020
  4. CLOFAZIMINE [Suspect]
     Active Substance: CLOFAZIMINE
     Indication: Tuberculosis
     Route: 065
     Dates: start: 20210521, end: 20211020
  5. CYCLOSERINE [Suspect]
     Active Substance: CYCLOSERINE
     Indication: Tuberculosis
     Route: 065
     Dates: start: 20210521, end: 20211020
  6. PYRAZINAMIDE [Suspect]
     Active Substance: PYRAZINAMIDE
     Indication: Tuberculosis
     Route: 065
     Dates: start: 20210521, end: 20211020
  7. PYRIDOXINE [Concomitant]
     Active Substance: PYRIDOXINE
     Indication: Prophylaxis
     Dates: start: 20210521, end: 20211020
  8. DOLUTEGRAVIR;LAMIVUDINE;TENOFOVIR [Concomitant]
     Dosage: 300/300/50 MG
     Dates: start: 20210616, end: 20211020
  9. COTRI [Concomitant]
     Indication: Opportunistic infection prophylaxis
     Dates: start: 20210521, end: 20211020
  10. FERROUS SULFATE [Concomitant]
     Active Substance: FERROUS SULFATE
     Indication: Anaemia
     Dates: start: 20210521, end: 20211020
  11. FOLIC ACID [Concomitant]
     Active Substance: FOLIC ACID
     Indication: Anaemia
     Dates: start: 20210521, end: 20211020
  12. OMEPRAZOLE [Concomitant]
     Active Substance: OMEPRAZOLE
     Indication: Vomiting
     Dates: start: 20210923, end: 20210930
  13. DEXTROSE [Concomitant]
     Active Substance: DEXTROSE
     Dates: start: 20210923, end: 20210923

REACTIONS (4)
  - HIV infection [Fatal]
  - Disseminated tuberculosis [Fatal]
  - Anaemia [Unknown]
  - Vomiting [Unknown]
